FAERS Safety Report 8884687 (Version 2)
Quarter: 2013Q1

REPORT INFORMATION
  Report Type: Spontaneous
  Country: US (occurrence: US)
  Receive Date: 20121102
  Receipt Date: 20130225
  Transmission Date: 20140127
  Serious: No
  Sender: FDA-Public Use
  Company Number: US-ASTRAZENECA-2012SE81004

PATIENT
  Age: 69 Year
  Sex: Female
  Weight: 54 kg

DRUGS (10)
  1. ARIMIDEX [Suspect]
     Indication: BREAST CANCER FEMALE
     Route: 048
     Dates: start: 201006, end: 20130131
  2. NEXIUM [Suspect]
     Route: 048
     Dates: start: 2004
  3. METRANAZOLE [Concomitant]
  4. CIPROFLAXIN [Concomitant]
  5. PREVASTATIN [Concomitant]
  6. EMLODIPINE [Concomitant]
  7. VITAMINS [Concomitant]
  8. SPRIRIVA [Concomitant]
  9. ADVAIR [Concomitant]
  10. COMBID [Concomitant]

REACTIONS (5)
  - Pain [Unknown]
  - Antinuclear antibody positive [Not Recovered/Not Resolved]
  - Red blood cell sedimentation rate increased [Not Recovered/Not Resolved]
  - Arthralgia [Unknown]
  - Myalgia [Not Recovered/Not Resolved]
